FAERS Safety Report 20808375 (Version 1)
Quarter: 2022Q2

REPORT INFORMATION
  Report Type: Spontaneous
  Country: US (occurrence: US)
  Receive Date: 20220510
  Receipt Date: 20220510
  Transmission Date: 20220721
  Serious: No
  Sender: FDA-Public Use
  Company Number: US-JNJFOC-20220455043

PATIENT
  Age: 81 Year
  Sex: Male
  Weight: 83.91 kg

DRUGS (7)
  1. ZYRTEC [Suspect]
     Active Substance: CETIRIZINE HYDROCHLORIDE
     Indication: Pruritus
     Dosage: ONCE A DAY BUT CAN TAKE TWICE A DAY IN 24 HOURS AS NEEDED AND DEPENDS ON HOW ACTIVE HE IS
     Route: 065
  2. DUPIXENT [Concomitant]
     Active Substance: DUPILUMAB
     Indication: Dermatitis atopic
     Dosage: STRENGTH AND COUNT SIZE: IT IS A PEN, 2ML, 300MG.
     Route: 065
  3. COVID-19 VACCINE [Concomitant]
     Indication: COVID-19 immunisation
     Route: 065
     Dates: start: 20210202
  4. COVID-19 VACCINE [Concomitant]
     Route: 065
     Dates: start: 20210226
  5. COVID-19 VACCINE [Concomitant]
     Route: 065
     Dates: start: 20210928
  6. COVID-19 VACCINE [Concomitant]
     Route: 065
     Dates: start: 20220414
  7. UROXATRAL [Concomitant]
     Active Substance: ALFUZOSIN HYDROCHLORIDE
     Indication: Prostatomegaly
     Route: 065

REACTIONS (1)
  - Overdose [Unknown]
